FAERS Safety Report 6108195-9 (Version None)
Quarter: 2009Q1

REPORT INFORMATION
  Report Type: 
  Country: None (occurrence: None)
  Receive Date: 20090309
  Receipt Date: 20090227
  Transmission Date: 20090719
  Serious: Yes (Hospitalization, Other)
  Sender: FDA-Public Use
  Company Number: US-PURDUE-USA_2009_0037099

PATIENT
  Age: 67 Year
  Sex: Female

DRUGS (6)
  1. MORPHINE SULFATE [Suspect]
     Indication: CANCER PAIN
     Dosage: 30 MG, UNK
     Route: 048
     Dates: start: 20060101, end: 20080901
  2. MORPHINE SULFATE [Suspect]
     Dosage: 30 MG, QID
     Route: 048
     Dates: start: 20080901
  3. PLAVIX [Concomitant]
     Indication: DRUG USE FOR UNKNOWN INDICATION
     Dosage: 75 MG, DAILY
     Route: 048
  4. ATENOLOL [Concomitant]
     Indication: HYPERTENSION
     Dosage: UNK MG, UNK
     Route: 048
  5. ZOLOFT [Concomitant]
     Indication: ANXIETY
     Dosage: UNK MG, UNK
     Route: 048
  6. FENTANYL [Concomitant]
     Indication: PAIN
     Dosage: 100 MG, UNK
     Route: 062

REACTIONS (3)
  - METASTASIS [None]
  - PAIN [None]
  - THROMBOSIS [None]
